FAERS Safety Report 25709292 (Version 1)
Quarter: 2025Q3

REPORT INFORMATION
  Report Type: Report from Study
  Country: US (occurrence: US)
  Receive Date: 20250821
  Receipt Date: 20250821
  Transmission Date: 20251020
  Serious: No
  Sender: SUNOVION
  Company Number: US-SUMITOMO PHARMA SWITZERLAND GMBH-2025SPA010523

PATIENT
  Age: 60 Year
  Sex: Male

DRUGS (8)
  1. ORGOVYX [Suspect]
     Active Substance: RELUGOLIX
     Indication: Product used for unknown indication
     Route: 048
     Dates: start: 20250114, end: 20250114
  2. ORGOVYX [Suspect]
     Active Substance: RELUGOLIX
     Route: 048
  3. CLONIDINE [Concomitant]
     Active Substance: CLONIDINE
  4. OMEPRAZOLE [Concomitant]
     Active Substance: OMEPRAZOLE
  5. HYDROCHLOROTHIAZIDE [Concomitant]
     Active Substance: HYDROCHLOROTHIAZIDE
  6. JARDIANCE [Concomitant]
     Active Substance: EMPAGLIFLOZIN
  7. METFORMIN [Concomitant]
     Active Substance: METFORMIN HYDROCHLORIDE
  8. NORVASC [Concomitant]
     Active Substance: AMLODIPINE BESYLATE

REACTIONS (1)
  - Fatigue [Unknown]
